FAERS Safety Report 7526247-3 (Version None)
Quarter: 2011Q2

REPORT INFORMATION
  Report Type: 
  Country: None (occurrence: None)
  Receive Date: 20110606
  Receipt Date: 20110526
  Transmission Date: 20111010
  Serious: Yes (Other)
  Sender: FDA-Public Use
  Company Number: GXKR2010PL13657

PATIENT
  Age: 60 Year
  Sex: Female

DRUGS (3)
  1. BISOPROLOL FUMARATE [Concomitant]
  2. PERINDOPRIL ERBUMINE [Concomitant]
     Dosage: UNK
  3. LORATADINE [Suspect]
     Indication: PRURITUS
     Dosage: 10 MG/DAY
     Route: 048
     Dates: start: 20100101

REACTIONS (9)
  - URTICARIA [None]
  - CHILLS [None]
  - BURNING SENSATION [None]
  - ALANINE AMINOTRANSFERASE INCREASED [None]
  - TENDERNESS [None]
  - MALAISE [None]
  - ASPARTATE AMINOTRANSFERASE INCREASED [None]
  - DYSPNOEA [None]
  - TYPE IV HYPERSENSITIVITY REACTION [None]
